FAERS Safety Report 24632668 (Version 1)
Quarter: 2024Q4

REPORT INFORMATION
  Report Type: Spontaneous
  Country: US (occurrence: US)
  Receive Date: 20241118
  Receipt Date: 20241118
  Transmission Date: 20250114
  Serious: No
  Sender: PERRIGO
  Company Number: US-PERRIGO-24US004030

PATIENT
  Age: 34 Year
  Sex: Female

DRUGS (1)
  1. OPILL [Suspect]
     Active Substance: NORGESTREL
     Indication: Product used for unknown indication
     Dosage: 0.075 MG, QD
     Route: 048
     Dates: start: 2024, end: 202404

REACTIONS (6)
  - Irritability [Unknown]
  - Heart rate increased [Unknown]
  - Hypertension [Unknown]
  - Migraine [Unknown]
  - Nausea [Unknown]
  - Heavy menstrual bleeding [Recovering/Resolving]

NARRATIVE: CASE EVENT DATE: 20240101
